FAERS Safety Report 5097303-7 (Version None)
Quarter: 2006Q3

REPORT INFORMATION
  Report Type: 
  Country: None (occurrence: None)
  Receive Date: 20060901
  Receipt Date: 20060814
  Transmission Date: 20061208
  Serious: Yes (Hospitalization)
  Sender: FDA-Public Use
  Company Number: US200608003231

PATIENT
  Sex: Female
  Weight: 101.6 kg

DRUGS (1)
  1. ZYPREXA [Suspect]
     Dates: start: 20030701

REACTIONS (4)
  - BLOOD CHOLESTEROL ABNORMAL [None]
  - CARDIAC DISORDER [None]
  - DIABETES MELLITUS [None]
  - POLYURIA [None]
